FAERS Safety Report 22239317 (Version 1)
Quarter: 2023Q2

REPORT INFORMATION
  Report Type: Spontaneous
  Country: TR (occurrence: None)
  Receive Date: 20230421
  Receipt Date: 20230421
  Transmission Date: 20230721
  Serious: Yes (Hospitalization, Other)
  Sender: FDA-Public Use
  Company Number: TR-MLMSERVICE-20230407-4207567-1

PATIENT
  Age: 39 Year
  Sex: Male

DRUGS (3)
  1. LITHIUM CARBONATE [Concomitant]
     Active Substance: LITHIUM CARBONATE
     Indication: Bipolar disorder
     Dates: start: 2013
  2. CLOZAPINE [Interacting]
     Active Substance: CLOZAPINE
     Indication: Bipolar disorder
     Dates: start: 2013, end: 201806
  3. CEFUROXIME [Interacting]
     Active Substance: CEFUROXIME
     Indication: Upper respiratory tract infection

REACTIONS (2)
  - Obsessive-compulsive symptom [Recovered/Resolved]
  - Drug interaction [Recovered/Resolved]
